FAERS Safety Report 9122714 (Version 5)
Quarter: 2014Q2

REPORT INFORMATION
  Report Type: Report from Study
  Country: US (occurrence: US)
  Receive Date: 20130227
  Receipt Date: 20140627
  Transmission Date: 20141212
  Serious: Yes (Hospitalization, Other)
  Sender: FDA-Public Use
  Company Number: US-ELI_LILLY_AND_COMPANY-US201302006130

PATIENT
  Age: 73 Year
  Sex: Female
  Weight: 52.15 kg

DRUGS (11)
  1. TERIPARATIDE [Suspect]
     Indication: OSTEOPOROSIS
     Dosage: 20 UG, QD
     Route: 058
     Dates: start: 20120627
  2. TERIPARATIDE [Suspect]
     Dosage: 20 UG, QD
     Route: 065
     Dates: end: 20130128
  3. TERIPARATIDE [Suspect]
     Dosage: UNK UNK, QD
     Route: 065
     Dates: start: 20120625
  4. CALCIUM [Concomitant]
     Dosage: 600 MG, TID
  5. VITAMIN D [Concomitant]
     Dosage: UNK, TID
  6. VITAMIN D3 [Concomitant]
     Dosage: 1000 IU, QD
  7. LEVOTHYROXINE [Concomitant]
     Dosage: 100 UG, QD
  8. ASPIRIN [Concomitant]
     Dosage: 81 MG, QD
  9. BYSTOLIC [Concomitant]
     Dosage: 5 MG, QD
  10. LOSARTIN [Concomitant]
     Dosage: 100 MG, QD
  11. OMEPRAZOLE [Concomitant]
     Dosage: 20 MG, QD

REACTIONS (2)
  - Femur fracture [Recovering/Resolving]
  - Fall [Unknown]
